FAERS Safety Report 24391584 (Version 1)
Quarter: 2024Q4

REPORT INFORMATION
  Report Type: Spontaneous
  Country: CA (occurrence: CA)
  Receive Date: 20241003
  Receipt Date: 20241003
  Transmission Date: 20250115
  Serious: Yes (Life-Threatening, Other)
  Sender: PFIZER
  Company Number: CA-PFIZER INC-202400266992

PATIENT
  Age: 60 Year
  Sex: Male

DRUGS (1)
  1. HEPARIN SODIUM [Suspect]
     Active Substance: HEPARIN SODIUM
     Dosage: UNK

REACTIONS (7)
  - Cardioversion [Unknown]
  - Demyelinating polyneuropathy [Unknown]
  - Drug ineffective [Unknown]
  - Hypotension [Unknown]
  - Resuscitation [Unknown]
  - Ventricular fibrillation [Unknown]
  - Suspected product quality issue [Unknown]
